FAERS Safety Report 8026002-4 (Version None)
Quarter: 2012Q1

REPORT INFORMATION
  Report Type: 
  Country: None (occurrence: None)
  Receive Date: 20120105
  Receipt Date: 20111010
  Transmission Date: 20120608
  Serious: No
  Sender: FDA-Public Use
  Company Number: US-ABBOTT-11P-163-0864288-00

PATIENT
  Age: 59 Year
  Sex: Female
  Weight: 86.26 kg

DRUGS (4)
  1. SYNTHROID [Suspect]
     Indication: THYROID CANCER
  2. SYNTHROID [Suspect]
     Indication: THYROIDECTOMY
     Dosage: 112MCG REDUCED TO ALTERNATE WITH 100MCG
     Route: 048
  3. SYNTHROID [Suspect]
     Indication: THYROID CANCER
  4. SYNTHROID [Suspect]
     Indication: THYROIDECTOMY
     Dosage: ALTERNATE WITH 112MCG

REACTIONS (2)
  - PANIC ATTACK [None]
  - BLOOD PRESSURE INCREASED [None]
